FAERS Safety Report 5587393-7 (Version None)
Quarter: 2008Q1

REPORT INFORMATION
  Report Type: 
  Country: None (occurrence: None)
  Receive Date: 20080110
  Receipt Date: 20080103
  Transmission Date: 20080703
  Serious: Yes (Other)
  Sender: FDA-Public Use
  Company Number: FR-ABBOTT-08P-056-0432320-00

PATIENT
  Age: 39 Year
  Sex: Female

DRUGS (1)
  1. VALPROATE DE SODIUM LP WINTHROP [Suspect]
     Indication: EPILEPSY
     Route: 048
     Dates: start: 20061125, end: 20061130

REACTIONS (7)
  - CONTUSION [None]
  - FALL [None]
  - GRAND MAL CONVULSION [None]
  - HAEMATOMA [None]
  - LOSS OF CONSCIOUSNESS [None]
  - NAIL AVULSION [None]
  - THERAPEUTIC RESPONSE UNEXPECTED WITH DRUG SUBSTITUTION [None]
